FAERS Safety Report 7964468-6 (Version None)
Quarter: 2011Q4

REPORT INFORMATION
  Report Type: 
  Country: None (occurrence: None)
  Receive Date: 20111205
  Receipt Date: 20111129
  Transmission Date: 20120403
  Serious: Yes (Hospitalization, Other)
  Sender: FDA-Public Use
  Company Number: ADR-2011-11108

PATIENT
  Sex: Male

DRUGS (1)
  1. LIORESAL [Suspect]
     Indication: MUSCLE SPASTICITY
     Dosage: UNK MCG, DAILY, INTRATH
     Route: 037

REACTIONS (8)
  - IMPLANT SITE OEDEMA [None]
  - AUTONOMIC DYSREFLEXIA [None]
  - DEVICE DISLOCATION [None]
  - DEVICE BREAKAGE [None]
  - MUSCLE SPASMS [None]
  - CONVULSION [None]
  - PYREXIA [None]
  - IMPLANT SITE ERYTHEMA [None]
